FAERS Safety Report 8125694-9 (Version None)
Quarter: 2012Q1

REPORT INFORMATION
  Report Type: 
  Country: None (occurrence: None)
  Receive Date: 20120209
  Receipt Date: 20120130
  Transmission Date: 20120608
  Serious: Yes (Hospitalization)
  Sender: FDA-Public Use
  Company Number: US-COVIDIEN/TYCO HEALTHCARE/MALLINCKRODT-T201200533

PATIENT
  Age: 52 Year
  Sex: Male

DRUGS (4)
  1. MORPHINE [Suspect]
     Dosage: UNK
  2. EXALGO [Suspect]
     Dosage: UNK
  3. BENZODIAZEPINE RELATED DRUGS [Suspect]
     Dosage: UNK
  4. MARIJUANA [Suspect]
     Dosage: UNK

REACTIONS (6)
  - INTENTIONAL DRUG MISUSE [None]
  - AMMONIA INCREASED [None]
  - SEPSIS [None]
  - HEADACHE [None]
  - DEPRESSED LEVEL OF CONSCIOUSNESS [None]
  - RESPIRATORY DEPRESSION [None]
